FAERS Safety Report 11590890 (Version 2)
Quarter: 2015Q4

REPORT INFORMATION
  Report Type: Spontaneous
  Country: BR (occurrence: BR)
  Receive Date: 20151002
  Receipt Date: 20151015
  Transmission Date: 20160304
  Serious: Yes (Other)
  Sender: FDA-Public Use
  Company Number: ALCN2015BR006005

PATIENT
  Age: 1 Year
  Sex: Male
  Weight: 19 kg

DRUGS (9)
  1. PRELONE [Suspect]
     Active Substance: PREDNISOLONE
     Indication: PHARYNGITIS
     Dosage: 5 ML, Q12H
     Route: 065
     Dates: start: 20150917
  2. PRELONE [Suspect]
     Active Substance: PREDNISOLONE
     Indication: RHINITIS
  3. AD TIL [Concomitant]
     Indication: NUTRITIONAL SUPPLEMENTATION
     Dosage: 2 GTT, QD
     Route: 048
     Dates: start: 201408
  4. TOBREX [Suspect]
     Active Substance: TOBRAMYCIN
     Indication: SINUSITIS
     Dosage: 1 GTT, Q4H
     Route: 047
     Dates: start: 20150917, end: 20150921
  5. MOTILEX                                 /INO/ [Concomitant]
     Indication: ASTHMA
     Dosage: 5 MG, QHS
     Route: 048
     Dates: start: 201505
  6. LOSECA [Concomitant]
     Indication: GASTROOESOPHAGEAL REFLUX DISEASE
     Dosage: 10 MG, QD
     Route: 048
     Dates: start: 201505
  7. TOBREX [Suspect]
     Active Substance: TOBRAMYCIN
     Indication: EYE DISCHARGE
  8. NOVAMOX [Suspect]
     Active Substance: AMOXICILLIN
     Indication: RHINITIS
  9. NOVAMOX [Suspect]
     Active Substance: AMOXICILLIN
     Indication: PHARYNGITIS
     Dosage: 5 ML, Q12H
     Route: 065
     Dates: start: 20150917

REACTIONS (9)
  - Insomnia [Recovered/Resolved]
  - Urticaria [Not Recovered/Not Resolved]
  - Agitation [Recovered/Resolved]
  - Impatience [Recovered/Resolved]
  - Product use issue [Recovered/Resolved]
  - Vomiting [Recovered/Resolved]
  - Diarrhoea [Recovered/Resolved]
  - Anger [Recovered/Resolved]
  - Anxiety [Recovered/Resolved]

NARRATIVE: CASE EVENT DATE: 20150918
